FAERS Safety Report 6796306-1 (Version None)
Quarter: 2010Q2

REPORT INFORMATION
  Report Type: 
  Country: None (occurrence: None)
  Receive Date: 20100624
  Receipt Date: 20100624
  Transmission Date: 20101027
  Serious: Yes (Other)
  Sender: FDA-Public Use
  Company Number: None

PATIENT
  Sex: Female
  Weight: 112.4921 kg

DRUGS (1)
  1. OXYCODONE HCL EXTENDED-RELEASE [Suspect]
     Indication: BACK PAIN
     Dosage: 12H PO WRITTEN FOR 30 DAY TRIAL FOR 15 DAYS
     Route: 048

REACTIONS (3)
  - ABDOMINAL DISCOMFORT [None]
  - PRURITUS [None]
  - PRURITUS GENERALISED [None]
